FAERS Safety Report 11706483 (Version 3)
Quarter: 2016Q3

REPORT INFORMATION
  Report Type: Spontaneous
  Country: US (occurrence: US)
  Receive Date: 20151106
  Receipt Date: 20160725
  Transmission Date: 20161109
  Serious: Yes (Other)
  Sender: FDA-Public Use
  Company Number: US-JNJFOC-20151024081

PATIENT
  Age: 50 Year
  Sex: Male
  Weight: 95.26 kg

DRUGS (4)
  1. PRAVASTATIN. [Concomitant]
     Active Substance: PRAVASTATIN
     Indication: BLOOD CHOLESTEROL INCREASED
     Route: 065
  2. XARELTO [Suspect]
     Active Substance: RIVAROXABAN
     Indication: DEEP VEIN THROMBOSIS
     Route: 048
     Dates: start: 2014, end: 201511
  3. ACYCLOVIR. [Concomitant]
     Active Substance: ACYCLOVIR
     Indication: GENITAL HERPES
     Route: 065
  4. XARELTO [Suspect]
     Active Substance: RIVAROXABAN
     Indication: DEEP VEIN THROMBOSIS
     Route: 048
     Dates: start: 20151126

REACTIONS (10)
  - Peripheral swelling [Recovering/Resolving]
  - Laceration [Recovered/Resolved]
  - Injury [Recovered/Resolved]
  - Contusion [Recovered/Resolved]
  - Injury [Recovering/Resolving]
  - Road traffic accident [Recovered/Resolved]
  - Oedema peripheral [Not Recovered/Not Resolved]
  - Tendon injury [Not Recovered/Not Resolved]
  - Joint dislocation [Recovered/Resolved]
  - Limb injury [Recovered/Resolved]

NARRATIVE: CASE EVENT DATE: 20151008
